FAERS Safety Report 11052450 (Version 1)
Quarter: 2015Q2

REPORT INFORMATION
  Report Type: Spontaneous
  Country: ZA (occurrence: ZA)
  Receive Date: 20150421
  Receipt Date: 20150421
  Transmission Date: 20150821
  Serious: Yes (Other)
  Sender: FDA-Public Use
  Company Number: ZA-ASTRAZENECA-2015SE36450

PATIENT
  Age: 40 Year
  Sex: Female

DRUGS (2)
  1. CRESTOR [Suspect]
     Active Substance: ROSUVASTATIN CALCIUM
     Indication: HYPERCHOLESTEROLAEMIA
     Route: 048
  2. OTHER MEDICATIONS [Concomitant]
     Active Substance: UNSPECIFIED INGREDIENT

REACTIONS (3)
  - Muscle spasms [Recovered/Resolved]
  - Dementia [Recovered/Resolved]
  - Schizophrenia [Recovered/Resolved]
